FAERS Safety Report 23083126 (Version 2)
Quarter: 2023Q4

REPORT INFORMATION
  Report Type: Other
  Country: GB (occurrence: GB)
  Receive Date: 20231019
  Receipt Date: 20231102
  Transmission Date: 20240109
  Serious: Yes (Disabling)
  Sender: FDA-Public Use
  Company Number: None

PATIENT

DRUGS (11)
  1. SOLIFENACIN SUCCINATE [Suspect]
     Active Substance: SOLIFENACIN SUCCINATE
     Indication: Ill-defined disorder
     Dosage: 5 MILLIGRAM, OD
     Route: 065
     Dates: start: 20230914
  2. SOLIFENACIN SUCCINATE [Suspect]
     Active Substance: SOLIFENACIN SUCCINATE
     Dosage: UNK
     Route: 065
     Dates: start: 20230926
  3. ATORVASTATIN [Concomitant]
     Active Substance: ATORVASTATIN
     Indication: Ill-defined disorder
     Dosage: 1 DOSAGE FORM
     Route: 065
     Dates: start: 20220718
  4. ATORVASTATIN [Concomitant]
     Active Substance: ATORVASTATIN
     Indication: Blood cholesterol increased
  5. BRINZOLAMIDE [Concomitant]
     Active Substance: BRINZOLAMIDE
     Indication: Ill-defined disorder
     Dosage: 1 DROP, BID, IN BOTH EYES
     Dates: start: 20230429
  6. CHOLECALCIFEROL [Concomitant]
     Active Substance: CHOLECALCIFEROL
     Indication: Ill-defined disorder
     Dosage: UNK, QD; 1 DAILY
     Route: 065
     Dates: start: 20220718
  7. DONEPEZIL HYDROCHLORIDE [Concomitant]
     Active Substance: DONEPEZIL HYDROCHLORIDE
     Indication: Ill-defined disorder
     Dosage: 1 DOSAGE FORM, QD (TAKE ONE TABLET (5MG) DAILY)
     Route: 065
     Dates: start: 20230912
  8. DONEPEZIL HYDROCHLORIDE [Concomitant]
     Active Substance: DONEPEZIL HYDROCHLORIDE
     Dosage: 5 MILLIGRAM, OD
     Route: 065
     Dates: start: 20230912
  9. SOLIFENACIN [Concomitant]
     Active Substance: SOLIFENACIN
     Indication: Ill-defined disorder
     Dosage: UNK, QD; TAKE ONE DAILY
     Route: 065
     Dates: start: 20230914
  10. TIMOLOL [Concomitant]
     Active Substance: TIMOLOL
     Indication: Ill-defined disorder
     Dosage: 1 DROP, OD; ONE DROP ONCE DAILY AT BEDTIME TO BOTH EYES
     Dates: start: 20230429
  11. LATANOPROST\TIMOLOL MALEATE [Concomitant]
     Active Substance: LATANOPROST\TIMOLOL MALEATE
     Indication: Ill-defined disorder
     Dosage: 1 DROP, OD; ONE DROP ONCE DAILY AT BEDTIME TO BOTH EYES
     Dates: start: 20230721, end: 20230818

REACTIONS (1)
  - Oral mucosal blistering [Recovering/Resolving]

NARRATIVE: CASE EVENT DATE: 20230916
